FAERS Safety Report 21704369 (Version 1)
Quarter: 2022Q4

REPORT INFORMATION
  Report Type: Spontaneous
  Country: US (occurrence: US)
  Receive Date: 20221209
  Receipt Date: 20221209
  Transmission Date: 20230112
  Serious: Yes (Hospitalization, Other)
  Sender: FDA-Public Use
  Company Number: US-STERISCIENCE B.V.-2022-ST-000186

PATIENT
  Age: 2 Day
  Sex: Male

DRUGS (2)
  1. ONDANSETRON [Suspect]
     Active Substance: ONDANSETRON
     Indication: Product used for unknown indication
     Dosage: 2 MILLIGRAM
     Route: 030
  2. LIDOCAINE [Suspect]
     Active Substance: LIDOCAINE
     Indication: Product used for unknown indication
     Dosage: UNKNOWN;INJECTION
     Route: 065

REACTIONS (6)
  - Penile oedema [None]
  - Bradycardia [None]
  - Electrocardiogram QT prolonged [None]
  - Tachycardia [None]
  - Tachypnoea [None]
  - Accidental exposure to product [None]
